FAERS Safety Report 15988951 (Version 1)
Quarter: 2019Q1

REPORT INFORMATION
  Report Type: Other
  Country: CA (occurrence: CA)
  Receive Date: 20190221
  Receipt Date: 20190221
  Transmission Date: 20190418
  Serious: Yes (Other)
  Sender: FDA-Public Use
  Company Number: CA-INNOGENIX, LLC-2062997

PATIENT
  Age: 22 Year
  Sex: Female

DRUGS (11)
  1. CRYSTALLOID FLUIDS [Concomitant]
     Route: 042
  2. METHAMPHETAMINE HYDROCHLORIDE. [Concomitant]
     Active Substance: METHAMPHETAMINE HYDROCHLORIDE
     Route: 042
  3. MIDAZOLAM [Concomitant]
     Active Substance: MIDAZOLAM HYDROCHLORIDE
     Route: 065
  4. FENTANYL. [Concomitant]
     Active Substance: FENTANYL
     Route: 065
  5. LABETALOL HYDROCHLORIDE. [Suspect]
     Active Substance: LABETALOL HYDROCHLORIDE
     Indication: HYPERTENSION
     Route: 065
  6. EPOPROSTENOL. [Concomitant]
     Active Substance: EPOPROSTENOL
     Route: 065
  7. ROCURONIUM [Concomitant]
     Active Substance: ROCURONIUM BROMIDE
     Route: 065
  8. NOREPINEPHRINE. [Concomitant]
     Active Substance: NOREPINEPHRINE
     Route: 065
  9. VASOPRESSORS [Concomitant]
     Active Substance: UNSPECIFIED INGREDIENT
     Route: 065
  10. NITROGLYCERIN. [Concomitant]
     Active Substance: NITROGLYCERIN
     Route: 065
  11. PHENYLEPHRINE [Concomitant]
     Active Substance: PHENYLEPHRINE\PHENYLEPHRINE HYDROCHLORIDE
     Route: 065

REACTIONS (1)
  - Cardiac arrest [Recovered/Resolved]
